FAERS Safety Report 14897071 (Version 1)
Quarter: 2018Q2

REPORT INFORMATION
  Report Type: Spontaneous
  Country: US (occurrence: US)
  Receive Date: 20180427
  Receipt Date: 20180427
  Transmission Date: 20180711
  Serious: No
  Sender: FDA-Public Use
  Company Number: None

PATIENT

DRUGS (1)
  1. ISOSORBIDE MONONITRATE ER [Suspect]
     Active Substance: ISOSORBIDE MONONITRATE

REACTIONS (2)
  - Medication residue present [None]
  - Product solubility abnormal [None]
